FAERS Safety Report 13443843 (Version 2)
Quarter: 2017Q3

REPORT INFORMATION
  Report Type: Spontaneous
  Country: US (occurrence: US)
  Receive Date: 20170414
  Receipt Date: 20170706
  Transmission Date: 20171127
  Serious: Yes (Hospitalization)
  Sender: FDA-Public Use
  Company Number: US-ASTRAZENECA-2017SE38366

PATIENT
  Sex: Female

DRUGS (1)
  1. SYMBICORT [Suspect]
     Active Substance: BUDESONIDE\FORMOTEROL FUMARATE DIHYDRATE
     Dosage: 160/4.5 UG, DAILY DOSE UNKNOWN UNKNOWN
     Route: 055

REACTIONS (7)
  - Drug effect decreased [Unknown]
  - Pneumonia [Recovering/Resolving]
  - Device issue [Unknown]
  - Respiratory disorder [Recovering/Resolving]
  - Off label use of device [Unknown]
  - Cardiac disorder [Recovering/Resolving]
  - Intentional product misuse [Unknown]
